FAERS Safety Report 9748742 (Version 1)
Quarter: 2013Q4

REPORT INFORMATION
  Report Type: Spontaneous
  Country: GB (occurrence: None)
  Receive Date: 20131209
  Receipt Date: 20131209
  Transmission Date: 20140711
  Serious: Yes (Other)
  Sender: FDA-Public Use
  Company Number: GB-013878

PATIENT
  Age: 16 Year
  Sex: Male
  Weight: 81.4 kg

DRUGS (3)
  1. ZOMACTON [Suspect]
     Indication: GROWTH HORMONE DEFICIENCY
     Dosage: 1.8 MG PER DAY FOR 4 DAYS, 1.9MG PER DAY FOR 3 DAYS PER WEEK, SUBCUTANEOUS
     Route: 058
     Dates: start: 20130601
  2. PREDNISOLONE [Concomitant]
  3. TACROLIMUS [Concomitant]

REACTIONS (1)
  - Hyperglycaemia [None]
